FAERS Safety Report 8475137 (Version 3)
Quarter: 2013Q3

REPORT INFORMATION
  Report Type: Report from Study
  Country: US (occurrence: US)
  Receive Date: 20120323
  Receipt Date: 20130722
  Transmission Date: 20140515
  Serious: Yes (Death, Hospitalization)
  Sender: FDA-Public Use
  Company Number: PHEH2011US013044

PATIENT
  Age: 58 Year
  Sex: Male

DRUGS (11)
  1. MYFORTIC [Suspect]
     Indication: IMMUNOSUPPRESSION
     Dosage: 360 MG, BID
     Route: 048
     Dates: start: 20050919, end: 20110803
  2. OMEPRAZOLE [Concomitant]
     Dosage: 20 MG
  3. METOPROLOL TARTRATE [Concomitant]
  4. PREDNISONE [Concomitant]
     Dosage: 5 MG
  5. PROGRAF [Concomitant]
     Dosage: 1 MG
  6. LANTUS [Concomitant]
  7. NOVOLOG [Concomitant]
  8. LIPITOR [Concomitant]
     Dosage: 20 MG
  9. AMLODIPINE [Concomitant]
     Dosage: 5 MG
  10. LEVOTHYROXINE [Concomitant]
     Dosage: 25 UG
  11. LISINOPRIL [Concomitant]
     Dosage: 20 MG

REACTIONS (1)
  - Diabetic complication [Fatal]
